FAERS Safety Report 17222287 (Version 1)
Quarter: 2020Q1

REPORT INFORMATION
  Report Type: Spontaneous
  Country: US (occurrence: US)
  Receive Date: 20191231
  Receipt Date: 20191231
  Transmission Date: 20200409
  Serious: Yes (Other)
  Sender: FDA-Public Use
  Company Number: None

PATIENT
  Age: 49 Year
  Sex: Female

DRUGS (7)
  1. HYDROCODONE/APAP 10/325 MG FOUR TIMES PER DAY [Concomitant]
     Dates: start: 20160101
  2. OXYBUTYNIN 5MG TWICE A DAY [Concomitant]
     Dates: start: 20191220
  3. GABAPENTIN 600 MG FOUR TIMES A DAY [Concomitant]
     Dates: start: 20160101
  4. ESCITALOPRAM 10 MG DAILY [Concomitant]
     Dates: start: 20180124
  5. AMITRIPTYLINE 100MG DAILY [Concomitant]
     Dates: start: 20180813
  6. DIAZEPAM 10MG TWICE A DAY [Concomitant]
     Dates: start: 20180124, end: 20190930
  7. CARISOPRODOL. [Suspect]
     Active Substance: CARISOPRODOL
     Route: 048
     Dates: start: 20191211, end: 20191228

REACTIONS (9)
  - Tremor [None]
  - Dyskinesia [None]
  - Seizure [None]
  - Therapeutic response decreased [None]
  - Product substitution issue [None]
  - Balance disorder [None]
  - Feeling abnormal [None]
  - Wheelchair user [None]
  - Product availability issue [None]

NARRATIVE: CASE EVENT DATE: 20191228
